FAERS Safety Report 24354055 (Version 2)
Quarter: 2024Q4

REPORT INFORMATION
  Report Type: Spontaneous
  Country: US (occurrence: US)
  Receive Date: 20240923
  Receipt Date: 20241009
  Transmission Date: 20250115
  Serious: No
  Sender: MYLAN
  Company Number: US-MYLANLABS-2024M1085199

PATIENT
  Age: 3 Year
  Sex: Female

DRUGS (1)
  1. EPINEPHRINE [Suspect]
     Active Substance: EPINEPHRINE
     Indication: Product used for unknown indication
     Dosage: 0.15 MILLIGRAM
     Route: 065

REACTIONS (2)
  - Liquid product physical issue [None]
  - Product quality issue [None]

NARRATIVE: CASE EVENT DATE: 20240913
